FAERS Safety Report 4724259-6 (Version None)
Quarter: 2005Q3

REPORT INFORMATION
  Report Type: 
  Country: None (occurrence: None)
  Receive Date: 20050722
  Receipt Date: 20050718
  Transmission Date: 20060218
  Serious: Yes (Life-Threatening, Hospitalization)
  Sender: FDA-Public Use
  Company Number: 215511

PATIENT
  Age: 82 Year
  Sex: Female
  Weight: 55 kg

DRUGS (10)
  1. MABTHERA (RITUXIMAB) CONC FOR SOLUTION FOR INFUSION [Suspect]
     Dosage: 585 MG, 1/WEEK X4, INTRAVENOUS
     Route: 042
     Dates: start: 20050415, end: 20050506
  2. PREDNISOLONE [Concomitant]
  3. LANSOPRAZOLE [Concomitant]
  4. WARFARIN SODIUM [Concomitant]
  5. BISOPROLOL FUMARATE [Concomitant]
  6. MAGNYL (ASPIRIN, MAGNESIUM OXIDE, SODIUM BICARBONATE) [Concomitant]
  7. IMOZOP (ZOPICLONE) [Concomitant]
  8. PRIMPERAN ELIXIR [Concomitant]
  9. TAZOCIN (TAZOBACTAM SODIUM, PIPERACILLIN SODIUM) [Concomitant]
  10. GENTAMICIN [Concomitant]

REACTIONS (1)
  - FEBRILE NEUTROPENIA [None]
